FAERS Safety Report 14869826 (Version 2)
Quarter: 2018Q2

REPORT INFORMATION
  Report Type: Spontaneous
  Country: CN (occurrence: CN)
  Receive Date: 20180509
  Receipt Date: 20180621
  Transmission Date: 20180711
  Serious: Yes (Hospitalization, Other)
  Sender: FDA-Public Use
  Company Number: CN-ASTELLAS-2018US021177

PATIENT
  Age: 67 Year
  Sex: Female
  Weight: 50 kg

DRUGS (2)
  1. VORICONAZOLE. [Suspect]
     Active Substance: VORICONAZOLE
     Indication: INFECTION
     Dosage: UNK, UNKNOWN FREQ.
     Route: 042
  2. MYCAMINE [Suspect]
     Active Substance: MICAFUNGIN SODIUM
     Indication: FUNGAL INFECTION
     Route: 042
     Dates: start: 20180430, end: 20180501

REACTIONS (1)
  - Rash generalised [Recovered/Resolved]

NARRATIVE: CASE EVENT DATE: 20180430
